FAERS Safety Report 18790419 (Version 3)
Quarter: 2021Q3

REPORT INFORMATION
  Report Type: Spontaneous
  Country: JP (occurrence: JP)
  Receive Date: 20210126
  Receipt Date: 20210921
  Transmission Date: 20211014
  Serious: Yes (Hospitalization, Other)
  Sender: FDA-Public Use
  Company Number: JP-KYOWAKIRIN-2021AKK001158

PATIENT

DRUGS (136)
  1. CERNILTON [HERBAL POLLEN NOS] [Concomitant]
     Dosage: 2 DF, BID, AFTER BREAKFAST AND DINNER
     Route: 048
     Dates: start: 20200626, end: 20201016
  2. TAMSULOSIN HYDROCHLORIDE OD [Concomitant]
     Active Substance: TAMSULOSIN HYDROCHLORIDE
     Dosage: 0.2 MG, QD, AFTER BREAKFAST
     Route: 048
     Dates: start: 20201125
  3. HYALONSAN [Concomitant]
     Active Substance: HYALURONATE SODIUM
     Dosage: UNK, MORE THAN 4 TIMES/DAY
     Route: 047
     Dates: start: 20200520, end: 20200617
  4. FEBURIC [Concomitant]
     Active Substance: FEBUXOSTAT
     Dosage: 40 MG, QD, AFTER BREAKFAST
     Route: 048
     Dates: start: 20200530, end: 20200612
  5. ACETAMINOPHEN. [Concomitant]
     Active Substance: ACETAMINOPHEN
     Dosage: 400 MG, QD
     Route: 048
     Dates: start: 20200609, end: 20200609
  6. PREDONINE [Concomitant]
     Active Substance: PREDNISOLONE
     Dosage: 10 MG, BID, AFTER BREAKFAST AND DINNER
     Route: 048
     Dates: start: 20200704, end: 20200704
  7. PREDONINE [Concomitant]
     Active Substance: PREDNISOLONE
     Dosage: 20 MG, BID, AFTER BREAKFAST AND LUNCH
     Route: 048
     Dates: start: 20200721, end: 20200725
  8. PREDONINE [Concomitant]
     Active Substance: PREDNISOLONE
     Dosage: 15 MG, BID, AFTER BREAKFAST AND LUNCH
     Route: 048
     Dates: start: 20200726, end: 20200730
  9. PREDONINE [Concomitant]
     Active Substance: PREDNISOLONE
     Dosage: BID, AFTER BREAKFAST AND LUNCH
     Route: 048
     Dates: start: 20200808, end: 20200814
  10. PREDONINE [Concomitant]
     Active Substance: PREDNISOLONE
     Dosage: 10 MG, QD, AFTER BREAKFAST
     Route: 048
     Dates: start: 20200815, end: 20200821
  11. PREDONINE [Concomitant]
     Active Substance: PREDNISOLONE
     Dosage: 30 MG, BID, AFTER BREAKFAST AND LUNCH
     Route: 048
     Dates: start: 20200826, end: 20200827
  12. PREDONINE [Concomitant]
     Active Substance: PREDNISOLONE
     Dosage: 30 MG, BID, AFTER BREAKFAST AND LUNCH
     Route: 048
     Dates: start: 20200912, end: 20200923
  13. PREDONINE [Concomitant]
     Active Substance: PREDNISOLONE
     Dosage: 20 MG, BID, AFTER BREAKFAST AND LUNCH
     Route: 048
     Dates: start: 20201008, end: 20201016
  14. AZUNOL [SODIUM GUALENATE] [Concomitant]
     Active Substance: SODIUM GUALENATE
     Dosage: UNK, SEVERAL TIMES/DAY
     Route: 048
     Dates: start: 20200626, end: 20200705
  15. AZUNOL [GUAIAZULENE] [Concomitant]
     Active Substance: GUAIAZULENE
     Dosage: UNK UNK, TID
     Route: 061
     Dates: start: 20201002, end: 20201018
  16. METHYCOBAL [Concomitant]
     Active Substance: METHYLCOBALAMIN
     Dosage: 500 UG, TID, AFTER EVERY MEAL
     Route: 048
     Dates: start: 20200626, end: 20201016
  17. XALATAN [Concomitant]
     Active Substance: LATANOPROST
     Dosage: UNK UNK, QD, IN THE LATE AFTERNOON
     Route: 047
     Dates: start: 20200710, end: 20200926
  18. GENTAMICIN SULFATE. [Concomitant]
     Active Substance: GENTAMICIN SULFATE
     Dosage: UNK UNK, QD
     Route: 061
     Dates: start: 20200908, end: 20201007
  19. OLOPATADINE HYDROCHLORIDE OD [Concomitant]
     Dosage: 5 MG, BID, AFTER BREAKFAST AND BEFORE BEDTIME
     Route: 048
     Dates: start: 20200626, end: 20200825
  20. OLOPATADINE HYDROCHLORIDE OD [Concomitant]
     Dosage: 5 MG, QD, BEFORE BEDTIME
     Route: 048
     Dates: start: 20200828, end: 20200828
  21. ITRACONAZOLE. [Concomitant]
     Active Substance: ITRACONAZOLE
     Dosage: 20 ML, QD, BEFORE BEDTIME
     Route: 048
     Dates: start: 20200826, end: 20201016
  22. XYZAL [Concomitant]
     Active Substance: LEVOCETIRIZINE DIHYDROCHLORIDE
     Dosage: 5 MG, PRN
     Route: 048
     Dates: start: 20200826, end: 20200924
  23. ENDOXAN [CYCLOPHOSPHAMIDE] [Concomitant]
     Active Substance: CYCLOPHOSPHAMIDE
     Indication: ADULT T-CELL LYMPHOMA/LEUKAEMIA
     Dosage: 1250 MG
     Route: 041
     Dates: start: 20200527
  24. STRONGER NEO?MINOPHAGEN C [Concomitant]
     Active Substance: AMMONIUM GLYCYRRHIZATE\CYSTEINE HYDROCHLORIDE\GLYCINE
     Dosage: 40 ML, QD
     Route: 042
     Dates: start: 20200630, end: 20200701
  25. POTELIGEO [Suspect]
     Active Substance: MOGAMULIZUMAB-KPKC
     Indication: ADULT T-CELL LYMPHOMA/LEUKAEMIA
     Dosage: 69.1 MG, QD
     Route: 041
     Dates: start: 20200601
  26. TAMSULOSIN HYDROCHLORIDE OD [Concomitant]
     Active Substance: TAMSULOSIN HYDROCHLORIDE
     Dosage: 0.2 MG, QD, AFTER BREAKFAST
     Route: 048
     Dates: start: 20200626, end: 20201016
  27. LATANOPROST. [Concomitant]
     Active Substance: LATANOPROST
     Dosage: UNK UNK, QD, IN THE EVENING
     Route: 047
     Dates: start: 20200626, end: 20200724
  28. TAKECAB [Concomitant]
     Active Substance: VONOPRAZAN FUMARATE
     Dosage: 20 MG, QD, AFTER BREAKFAST
     Route: 048
     Dates: start: 20200530, end: 20200612
  29. PREDONINE [Concomitant]
     Active Substance: PREDNISOLONE
     Dosage: BID, AFTER BREAKFAST AND LUNCH
     Route: 048
     Dates: start: 20200610, end: 20200614
  30. PREDONINE [Concomitant]
     Active Substance: PREDNISOLONE
     Dosage: 25 MG, BID, AFTER BREAKFAST AND LUNCH
     Route: 048
     Dates: start: 20200924, end: 20201007
  31. PREDONINE [Concomitant]
     Active Substance: PREDNISOLONE
     Dosage: 10 MG, BID, AFTER BREAKFAST AND LUNCH
     Route: 048
     Dates: start: 20210127
  32. XYLOCAINE [Concomitant]
     Active Substance: LIDOCAINE HYDROCHLORIDE
     Dosage: UNK
     Route: 065
     Dates: start: 20200610, end: 20200610
  33. AZUNOL [GUAIAZULENE] [Concomitant]
     Active Substance: GUAIAZULENE
     Dosage: UNK, SEVERAL TIMES/DAY
     Route: 061
     Dates: start: 20200916, end: 20200923
  34. POLAPREZINC [Concomitant]
     Active Substance: POLAPREZINC
     Dosage: UNK UNK, QID, BEFORE EVERY MEAL AND BEDTIME
     Route: 048
     Dates: start: 20200602, end: 20200605
  35. SODIUM ALGINATE [Concomitant]
     Active Substance: SODIUM ALGINATE
     Dosage: UNK UNK, QID, BEFORE EVERY MEAL AND BED TIME
     Route: 048
     Dates: start: 20200610, end: 20200614
  36. RESTAMIN [DIPHENHYDRAMINE] [Concomitant]
     Active Substance: DIPHENHYDRAMINE
     Dosage: UNK UNK, BID
     Route: 061
     Dates: start: 20200626, end: 20200724
  37. DERMOSOL G [Concomitant]
     Dosage: UNK UNK, BID
     Route: 061
     Dates: start: 20200626, end: 20200724
  38. XALATAN [Concomitant]
     Active Substance: LATANOPROST
     Dosage: UNK UNK, QD
     Route: 047
     Dates: start: 20200626, end: 20200724
  39. JUSO [Concomitant]
     Active Substance: SODIUM BICARBONATE
     Dosage: UNK UNK, PRN
     Route: 049
     Dates: start: 20200920, end: 20200923
  40. HIRUDOID [Concomitant]
     Active Substance: GLYCOSAMINOGLYCANS
     Dosage: UNK, SEVERAL TIMES A DAY
     Route: 061
     Dates: start: 20200908, end: 20201007
  41. HISHIPHAGEN [Concomitant]
     Dosage: 20 ML, QD
     Route: 042
     Dates: start: 20200821, end: 20200824
  42. TAMSULOSIN HYDROCHLORIDE OD [Concomitant]
     Active Substance: TAMSULOSIN HYDROCHLORIDE
     Dosage: 0.2 MG, QD, AFTER BREAKFAST
     Route: 048
     Dates: start: 20200520, end: 20200621
  43. KARY UNI [Concomitant]
     Active Substance: PIRENOXINE
     Dosage: UNK, QID
     Route: 047
     Dates: start: 20201001, end: 20201018
  44. LATANOPROST. [Concomitant]
     Active Substance: LATANOPROST
     Dosage: UNK UNK, QD, IN THE EVENING
     Route: 047
     Dates: start: 20200520, end: 20200617
  45. PREDONINE [Concomitant]
     Active Substance: PREDNISOLONE
     Dosage: 15 MG, BID, AFTER BREAKFAST AND DINNER
     Route: 048
     Dates: start: 20200627, end: 20200703
  46. PREDONINE [Concomitant]
     Active Substance: PREDNISOLONE
     Dosage: 15 MG, BID, AFTER BREAKFAST AND LUNCH
     Route: 048
     Dates: start: 20201111
  47. AZUNOL [GUAIAZULENE] [Concomitant]
     Active Substance: GUAIAZULENE
     Dosage: UNK, SEVERAL TIMES/DAY
     Route: 061
     Dates: start: 20200626, end: 20200629
  48. POLAPREZINC [Concomitant]
     Active Substance: POLAPREZINC
     Dosage: UNK UNK, QD, BEFORE BREAKFAST
     Route: 048
     Dates: start: 20200606, end: 20200606
  49. SODIUM ALGINATE [Concomitant]
     Active Substance: SODIUM ALGINATE
     Dosage: UNK UNK, QD
     Route: 048
     Dates: start: 20200606, end: 20200606
  50. GENTAMICIN SULFATE. [Concomitant]
     Active Substance: GENTAMICIN SULFATE
     Dosage: UNK UNK, QD
     Route: 061
     Dates: start: 20200626, end: 20200725
  51. KEFRAL [Concomitant]
     Active Substance: CEFACLOR
     Dosage: 250 MG, QD, AFTER DINNER
     Route: 048
     Dates: start: 20200626, end: 20200626
  52. KEFRAL [Concomitant]
     Active Substance: CEFACLOR
     Dosage: 250 MG, TID, AFTER EACH MEAL
     Route: 048
     Dates: start: 20200627, end: 20200628
  53. DEXAMETHASONE. [Concomitant]
     Active Substance: DEXAMETHASONE
     Dosage: UNK, SEVERAL TIMES A DAY
     Route: 061
     Dates: start: 20200925, end: 20201018
  54. FLORID [MICONAZOLE] [Concomitant]
     Active Substance: MICONAZOLE
     Dosage: 2.5 G, BID, AFTER BREAKFAST AND LUNCH
     Route: 048
     Dates: start: 20200805, end: 20200805
  55. POLARAMINE [Concomitant]
     Active Substance: DEXCHLORPHENIRAMINE MALEATE
     Dosage: 5 MG, TID
     Route: 042
     Dates: start: 20200821, end: 20200821
  56. FEBURIC [Concomitant]
     Active Substance: FEBUXOSTAT
     Dosage: 40 MG, QD, AFTER DINNER
     Route: 048
     Dates: start: 20200526, end: 20200529
  57. PREDONINE [Concomitant]
     Active Substance: PREDNISOLONE
     Dosage: 30 MG, BID, AFTER BREAKFAST AND LUNCH
     Route: 048
     Dates: start: 20200711, end: 20200715
  58. PREDONINE [Concomitant]
     Active Substance: PREDNISOLONE
     Dosage: BID, AFTER BREAKFAST AND LUNCH
     Route: 048
     Dates: start: 20201028
  59. AZUNOL [GUAIAZULENE] [Concomitant]
     Active Substance: GUAIAZULENE
     Dosage: UNK, SEVERAL TIMES/DAY
     Route: 061
     Dates: start: 20200531, end: 20200623
  60. SODIUM ALGINATE [Concomitant]
     Active Substance: SODIUM ALGINATE
     Dosage: UNK UNK, BID
     Route: 048
     Dates: start: 20200601, end: 20200601
  61. SODIUM ALGINATE [Concomitant]
     Active Substance: SODIUM ALGINATE
     Dosage: UNK UNK, QID, BEFORE EVERY MEAL AND BED TIME
     Route: 048
     Dates: start: 20200602, end: 20200605
  62. MARZULENE?S [Concomitant]
     Active Substance: GLUTAMINE\SODIUM GUALENATE
     Dosage: 0.5 G, TID, AFTER EACH MEAL
     Route: 048
     Dates: start: 20200626, end: 20201016
  63. OLOPATADINE HYDROCHLORIDE OD [Concomitant]
     Dosage: 10 MG, BID, AFTER BREAKFAST AND BEFORE BEDTIME
     Route: 048
     Dates: start: 20200826, end: 20200914
  64. KEFRAL [Concomitant]
     Active Substance: CEFACLOR
     Dosage: 250 MG, BID, AFTER BREAKFAST AND LUNCH
     Route: 048
     Dates: start: 20200629, end: 20200629
  65. DEXAMETHASONE. [Concomitant]
     Active Substance: DEXAMETHASONE
     Dosage: UNK, SEVERAL TIMES A DAY
     Route: 061
     Dates: start: 20200717, end: 20200905
  66. JUSO [Concomitant]
     Active Substance: SODIUM BICARBONATE
     Dosage: UNK UNK, TID
     Route: 049
     Dates: start: 20200722, end: 20200820
  67. JUSO [Concomitant]
     Active Substance: SODIUM BICARBONATE
     Dosage: UNK UNK, TID
     Route: 049
     Dates: start: 20200925, end: 20201018
  68. ONCOVIN [Concomitant]
     Active Substance: VINCRISTINE SULFATE
     Indication: ADULT T-CELL LYMPHOMA/LEUKAEMIA
     Dosage: 2 MG
     Route: 042
     Dates: start: 20200527
  69. SOLU?MEDROL [Concomitant]
     Active Substance: METHYLPREDNISOLONE SODIUM SUCCINATE
     Dosage: 250 MG
     Route: 041
     Dates: start: 20200601
  70. CERNILTON [HERBAL POLLEN NOS] [Concomitant]
     Dosage: 2 DF, BID, AFTER BREAKFAST AND DINNER
     Route: 048
     Dates: start: 20200520, end: 20200621
  71. CERNILTON [HERBAL POLLEN NOS] [Concomitant]
     Dosage: 126 MG, BID, AFTER BREAKFAST AND DINNER
     Route: 048
     Dates: start: 20201125
  72. KARY UNI [Concomitant]
     Active Substance: PIRENOXINE
     Dosage: UNK, QID
     Route: 047
     Dates: start: 20200520, end: 20200617
  73. TAKECAB [Concomitant]
     Active Substance: VONOPRAZAN FUMARATE
     Dosage: 20 MG, QD, AFTER DINNER
     Route: 048
     Dates: start: 20200526, end: 20200529
  74. DAIPHEN [Concomitant]
     Active Substance: SULFAMETHOXAZOLE\TRIMETHOPRIM
     Dosage: 2 DF, BID, AFTER BREAKFAST AND DINNER ON MONDAY AND THURSDAY
     Route: 048
     Dates: start: 20200713, end: 20200827
  75. PREDONINE [Concomitant]
     Active Substance: PREDNISOLONE
     Dosage: 30 MG, QD, AFTER DINNER
     Route: 048
     Dates: start: 20200626, end: 20200626
  76. PREDONINE [Concomitant]
     Active Substance: PREDNISOLONE
     Dosage: 10 MG, TID, AFTER BREAKFAST, LUNCH AND DINNER
     Route: 048
     Dates: start: 20200705, end: 20200705
  77. PREDONINE [Concomitant]
     Active Substance: PREDNISOLONE
     Dosage: BID, AFTER BREAKFAST AND LUNCH
     Route: 048
     Dates: start: 20201209
  78. PREDONINE [Concomitant]
     Active Substance: PREDNISOLONE
     Dosage: BID, AFTER BREAKFAST AND LUNCH
     Route: 048
     Dates: start: 20201223
  79. AZUNOL [SODIUM GUALENATE] [Concomitant]
     Active Substance: SODIUM GUALENATE
     Dosage: UNK, SEVERAL TIMES/DAY
     Route: 048
     Dates: start: 20200708, end: 20200806
  80. XYLOCAINE [Concomitant]
     Active Substance: LIDOCAINE HYDROCHLORIDE
     Dosage: UNK
     Route: 065
     Dates: start: 20200604, end: 20200604
  81. POLAPREZINC [Concomitant]
     Active Substance: POLAPREZINC
     Dosage: UNK UNK, BID, BEFORE DINNER AND BEDTIME
     Route: 048
     Dates: start: 20200601, end: 20200601
  82. POLAPREZINC [Concomitant]
     Active Substance: POLAPREZINC
     Dosage: UNK UNK, QID, BEFORE EVERY MEAL AND BED TIME
     Route: 048
     Dates: start: 20200610, end: 20200614
  83. METHYCOBAL [Concomitant]
     Active Substance: METHYLCOBALAMIN
     Dosage: 500 UG, TID, AFTER EVERY MEAL
     Route: 048
     Dates: start: 20200607, end: 20200612
  84. OLOPATADINE HYDROCHLORIDE OD [Concomitant]
     Dosage: 5 MG, QD, BEFORE BEDTIME
     Route: 048
     Dates: start: 20200723, end: 20200723
  85. JUSO [Concomitant]
     Active Substance: SODIUM BICARBONATE
     Dosage: UNK UNK, PRN
     Route: 049
     Dates: start: 20200817, end: 20200915
  86. ISOTONIC SODIUM CHLORIDE SOLUTION [Concomitant]
     Active Substance: SODIUM CHLORIDE
     Dosage: UNK UNK, QD
     Route: 041
     Dates: start: 20200527
  87. LEVOFLOXACIN HEMIHYDRATE [Concomitant]
     Active Substance: LEVOFLOXACIN
     Dosage: 500 MG, QD, AFTER DINNER
     Route: 048
     Dates: start: 20200526, end: 20200529
  88. ACETAMINOPHEN. [Concomitant]
     Active Substance: ACETAMINOPHEN
     Dosage: 400 MG, QD
     Route: 048
     Dates: start: 20200601, end: 20200601
  89. PREDONINE [Concomitant]
     Active Substance: PREDNISOLONE
     Dosage: QD, AFTER BREAKFAST AND DINNER
     Route: 048
     Dates: start: 20200527, end: 20200531
  90. PREDONINE [Concomitant]
     Active Substance: PREDNISOLONE
     Dosage: 10 MG, BID, AFTER BREAKFAST AND LUNCH
     Route: 048
     Dates: start: 20200822, end: 20200825
  91. PREDONINE [Concomitant]
     Active Substance: PREDNISOLONE
     Dosage: BID, AFTER BREAKFAST AND LUNCH
     Route: 048
     Dates: start: 20210106
  92. XYLOCAINE [Concomitant]
     Active Substance: LIDOCAINE HYDROCHLORIDE
     Dosage: UNK
     Route: 065
     Dates: start: 20200601, end: 20200601
  93. NEXIUM MUPS [ESOMEPRAZOLE MAGNESIUM] [Concomitant]
     Active Substance: ESOMEPRAZOLE MAGNESIUM
     Dosage: 20 MG, QD, AFTER BREAKFAST
     Route: 048
     Dates: start: 20200711, end: 20201016
  94. DEXAMETHASONE. [Concomitant]
     Active Substance: DEXAMETHASONE
     Dosage: UNK, SEVERAL TIMES A DAY
     Route: 061
     Dates: start: 20200908, end: 20200922
  95. FLORID [MICONAZOLE] [Concomitant]
     Active Substance: MICONAZOLE
     Dosage: 2.5 G, BID, AFTER DINNER AND BEFORE BEDTIME
     Dates: start: 20200722, end: 20200722
  96. LOXOPROFEN SODIUM HYDRATE [Concomitant]
     Active Substance: LOXOPROFEN SODIUM DIHYDRATE
     Dosage: 60 MG, PRN
     Route: 048
     Dates: start: 20200714, end: 20200829
  97. HIRUDOID [Concomitant]
     Active Substance: GLYCOSAMINOGLYCANS
     Dosage: UNK, SEVERAL TIMES A DAY
     Route: 061
     Dates: start: 20200908, end: 20201007
  98. GRANISETRON [GRANISETRON HYDROCHLORIDE] [Concomitant]
     Active Substance: GRANISETRON HYDROCHLORIDE
     Dosage: UNK UNK, QD
     Route: 041
     Dates: start: 20200527
  99. POLARAMINE [Concomitant]
     Active Substance: DEXCHLORPHENIRAMINE MALEATE
     Dosage: 5 MG, QD
     Route: 042
     Dates: start: 20200821, end: 20200824
  100. HISHIPHAGEN [Concomitant]
     Dosage: 20 ML, QD
     Route: 042
     Dates: start: 20200702, end: 20200703
  101. HYALONSAN [Concomitant]
     Active Substance: HYALURONATE SODIUM
     Dosage: UNK, MORE THAN 4 TIMES/DAY
     Route: 047
     Dates: start: 20200626, end: 20200724
  102. VICCLOX [ACICLOVIR] [Concomitant]
     Active Substance: ACYCLOVIR
     Dosage: 1 DF, QD, AFTER BREAKFAST
     Route: 048
     Dates: start: 20200530, end: 20200612
  103. LEVOFLOXACIN HEMIHYDRATE [Concomitant]
     Active Substance: LEVOFLOXACIN
     Dosage: 500 MG, QD, AFTER BREAKFAST
     Route: 048
     Dates: start: 20200530, end: 20200612
  104. DIFLUCAN [Concomitant]
     Active Substance: FLUCONAZOLE
     Dosage: 100 MG, QD, AFTER DINNER
     Route: 048
     Dates: start: 20200526, end: 20200529
  105. DAIPHEN [Concomitant]
     Active Substance: SULFAMETHOXAZOLE\TRIMETHOPRIM
     Dosage: 1 DF, QD, AFTER DINNER
     Route: 048
     Dates: start: 20200526, end: 20200529
  106. PREDONINE [Concomitant]
     Active Substance: PREDNISOLONE
     Dosage: 15 MG, BID, AFTER BREAKFAST AND DINNER
     Route: 048
     Dates: start: 20200706, end: 20200710
  107. PREDONINE [Concomitant]
     Active Substance: PREDNISOLONE
     Dosage: BID, AFTER BREAKFAST AND LUNCH
     Route: 048
     Dates: start: 20201125
  108. AZUNOL [SODIUM GUALENATE] [Concomitant]
     Active Substance: SODIUM GUALENATE
     Dosage: UNK, SEVERAL TIMES/DAY
     Route: 048
     Dates: start: 20200531, end: 20200623
  109. XYLOCAINE [Concomitant]
     Active Substance: LIDOCAINE HYDROCHLORIDE
     Dosage: UNK
     Route: 065
     Dates: start: 20200705, end: 20200705
  110. HYALEIN [Concomitant]
     Active Substance: HYALURONATE SODIUM
     Dosage: UNK UNK, QID
     Route: 047
     Dates: start: 20201001, end: 20201018
  111. XALATAN [Concomitant]
     Active Substance: LATANOPROST
     Dosage: UNK UNK, QD, IN THE LATE AFTERNOON
     Route: 047
     Dates: start: 20201001
  112. JUSO [Concomitant]
     Active Substance: SODIUM BICARBONATE
     Dosage: UNK UNK, TID
     Route: 049
     Dates: start: 20200908, end: 20200923
  113. ZOLPIDEM TARTRATE. [Concomitant]
     Active Substance: ZOLPIDEM TARTRATE
     Dosage: 5 MG, PRN
     Route: 048
     Dates: start: 20200714, end: 20200725
  114. DOXORUBICIN HYDROCHLORIDE. [Concomitant]
     Active Substance: DOXORUBICIN HYDROCHLORIDE
     Indication: ADULT T-CELL LYMPHOMA/LEUKAEMIA
     Dosage: 86 MG
     Route: 041
     Dates: start: 20200526
  115. POLARAMINE [Concomitant]
     Active Substance: DEXCHLORPHENIRAMINE MALEATE
     Dosage: 5 MG, QD
     Route: 042
     Dates: start: 20200713, end: 20200716
  116. HISHIPHAGEN [Concomitant]
     Dosage: 20 ML, QD
     Route: 042
     Dates: start: 20200713, end: 20200716
  117. KARY UNI [Concomitant]
     Active Substance: PIRENOXINE
     Dosage: UNK, QID
     Route: 047
     Dates: start: 20200626, end: 20200926
  118. KARY UNI [Concomitant]
     Active Substance: PIRENOXINE
     Dosage: UNK, QID
     Route: 047
     Dates: start: 20201125
  119. VICCLOX [ACICLOVIR] [Concomitant]
     Active Substance: ACYCLOVIR
     Dosage: 1 DF, QD,AFTER DINNER
     Route: 048
     Dates: start: 20200526, end: 20200529
  120. DIFLUCAN [Concomitant]
     Active Substance: FLUCONAZOLE
     Dosage: 100 MG, QD, AFTER BREAKFAST
     Route: 048
     Dates: start: 20200530, end: 20200612
  121. DAIPHEN [Concomitant]
     Active Substance: SULFAMETHOXAZOLE\TRIMETHOPRIM
     Dosage: 1 DF, QD, AFTER BREAKFAST
     Route: 048
     Dates: start: 20200530, end: 20200612
  122. PREDONINE [Concomitant]
     Active Substance: PREDNISOLONE
     Dosage: 25 MG, BID, AFTER BREAKFAST AND LUNCH
     Route: 048
     Dates: start: 20200716, end: 20200720
  123. PREDONINE [Concomitant]
     Active Substance: PREDNISOLONE
     Dosage: 10 MG, BID, AFTER BREAKFAST AND LUNCH
     Route: 048
     Dates: start: 20200731, end: 20200807
  124. PREDONINE [Concomitant]
     Active Substance: PREDNISOLONE
     Dosage: 30 MG, BID, AFTER BREAKFAST AND LUNCH
     Route: 048
     Dates: start: 20200831, end: 20200908
  125. PREDONINE [Concomitant]
     Active Substance: PREDNISOLONE
     Dosage: 10 MG, BID, AFTER BREAKFAST AND LUNCH
     Route: 048
     Dates: start: 20210224
  126. XYLOCAINE [Concomitant]
     Active Substance: LIDOCAINE HYDROCHLORIDE
     Dosage: UNK
     Route: 065
     Dates: start: 20200702, end: 20200702
  127. AZUNOL [GUAIAZULENE] [Concomitant]
     Active Substance: GUAIAZULENE
     Dosage: UNK, SEVERAL TIMES/DAY
     Route: 061
     Dates: start: 20200708, end: 20200806
  128. METHYCOBAL [Concomitant]
     Active Substance: METHYLCOBALAMIN
     Dosage: 500 UG, TID, AFTER EVERY MEAL
     Route: 048
     Dates: start: 20201125
  129. HYALEIN [Concomitant]
     Active Substance: HYALURONATE SODIUM
     Dosage: UNK UNK, QID
     Route: 047
     Dates: start: 20200626, end: 20200926
  130. MASKIN [Concomitant]
     Dosage: UNK UNK, QD
     Route: 065
     Dates: start: 20200626, end: 20200725
  131. FLORID [MICONAZOLE] [Concomitant]
     Active Substance: MICONAZOLE
     Dosage: 2.5 G, QID, AFTER EACH MEAL AND BEFORE BEDTIME
     Route: 048
     Dates: start: 20200723, end: 20200804
  132. ETIZOLAM [Concomitant]
     Active Substance: ETIZOLAM
     Dosage: 0.5 MG, PRN
     Route: 048
     Dates: start: 20200714, end: 20200725
  133. LOCOID [Concomitant]
     Active Substance: HYDROCORTISONE BUTYRATE
     Dosage: UNK UNK, BID
     Route: 061
     Dates: start: 20200819, end: 20200924
  134. GLYCYRON [DL?METHIONINE;GLYCINE;GLYCYRRHIZIC ACID, AMMONIUM SALT] [Concomitant]
     Active Substance: AMMONIUM GLYCYRRHIZATE\GLYCINE\RACEMETHIONINE
     Dosage: 1 DF, TID, AFTER EACH MEAL
     Route: 048
     Dates: start: 20200826, end: 20201016
  135. POLARAMINE [Concomitant]
     Active Substance: DEXCHLORPHENIRAMINE MALEATE
     Dosage: 5 MG
     Route: 041
     Dates: start: 20200601
  136. POLARAMINE [Concomitant]
     Active Substance: DEXCHLORPHENIRAMINE MALEATE
     Dosage: 5 MG, QD
     Route: 042
     Dates: start: 20200630, end: 20200703

REACTIONS (3)
  - Deafness [Recovering/Resolving]
  - Oedema [Recovering/Resolving]
  - Skin disorder [Recovering/Resolving]

NARRATIVE: CASE EVENT DATE: 20200611
